FAERS Safety Report 24855733 (Version 1)
Quarter: 2025Q1

REPORT INFORMATION
  Report Type: Spontaneous
  Country: GB (occurrence: GB)
  Receive Date: 20250117
  Receipt Date: 20250117
  Transmission Date: 20250409
  Serious: Yes (Hospitalization, Other)
  Sender: MYLAN
  Company Number: None

PATIENT
  Age: 56 Year
  Sex: Female
  Weight: 71 kg

DRUGS (3)
  1. PHENYTOIN [Interacting]
     Active Substance: PHENYTOIN
     Indication: Prophylaxis
     Route: 042
     Dates: start: 20250106, end: 20250106
  2. LEVETIRACETAM [Concomitant]
     Active Substance: LEVETIRACETAM
     Indication: Seizure
     Route: 065
     Dates: start: 20241205
  3. CLOBAZAM [Interacting]
     Active Substance: CLOBAZAM
     Indication: Seizure
     Route: 065

REACTIONS (4)
  - Poisoning [Recovered/Resolved]
  - Dysarthria [Recovered/Resolved]
  - Vertigo [Recovering/Resolving]
  - Ataxia [Recovered/Resolved]

NARRATIVE: CASE EVENT DATE: 20250106
